FAERS Safety Report 15721489 (Version 1)
Quarter: 2018Q4

REPORT INFORMATION
  Report Type: Spontaneous
  Country: US (occurrence: US)
  Receive Date: 20181214
  Receipt Date: 20181214
  Transmission Date: 20190205
  Serious: No
  Sender: FDA-Public Use
  Company Number: US-BIOGEN-2018BI00669645

PATIENT
  Sex: Female

DRUGS (1)
  1. TECFIDERA [Suspect]
     Active Substance: DIMETHYL FUMARATE
     Indication: MULTIPLE SCLEROSIS
     Route: 065
     Dates: start: 20170616

REACTIONS (5)
  - Flushing [Unknown]
  - Decreased vibratory sense [Unknown]
  - Hepatic enzyme increased [Unknown]
  - Gait disturbance [Unknown]
  - Nystagmus [Unknown]
